FAERS Safety Report 20921110 (Version 1)
Quarter: 2022Q2

REPORT INFORMATION
  Report Type: Spontaneous
  Country: US (occurrence: US)
  Receive Date: 20220606
  Receipt Date: 20220606
  Transmission Date: 20220721
  Serious: No
  Sender: FDA-Public Use
  Company Number: US-MYLANLABS-2022M1039751

PATIENT
  Sex: Female
  Weight: 58.97 kg

DRUGS (2)
  1. XULANE [Suspect]
     Active Substance: ETHINYL ESTRADIOL\NORELGESTROMIN
     Indication: Dysmenorrhoea
     Dosage: 150/35 MICROGRAM  QD
     Route: 062
  2. XULANE [Suspect]
     Active Substance: ETHINYL ESTRADIOL\NORELGESTROMIN
     Dosage: 150/35 MICROGRAM  QD
     Route: 062

REACTIONS (2)
  - Product adhesion issue [Unknown]
  - Off label use [Unknown]
